FAERS Safety Report 14257809 (Version 1)
Quarter: 2017Q4

REPORT INFORMATION
  Report Type: Spontaneous
  Country: FR (occurrence: FR)
  Receive Date: 20171207
  Receipt Date: 20171207
  Transmission Date: 20180321
  Serious: Yes (Hospitalization)
  Sender: FDA-Public Use
  Company Number: FR-ACCORD-061691

PATIENT
  Age: 58 Year
  Sex: Male

DRUGS (3)
  1. NALTREXONE/NALTREXONE HYDROCHLORIDE [Suspect]
     Active Substance: NALTREXONE
  2. DIAZEPAM. [Concomitant]
     Active Substance: DIAZEPAM
  3. BUPRENORPHINE. [Suspect]
     Active Substance: BUPRENORPHINE
     Indication: PRODUCT USED FOR UNKNOWN INDICATION
     Dosage: ALSO RECEIVED ANOTHER DOSE OF 8 MG

REACTIONS (11)
  - Myalgia [Recovered/Resolved]
  - Agitation [Recovered/Resolved]
  - Blood pressure increased [Recovered/Resolved]
  - Alcoholism [None]
  - Mydriasis [Recovered/Resolved]
  - Substance use [None]
  - Confusional state [Recovered/Resolved]
  - Wrong drug administered [None]
  - Withdrawal syndrome [Recovered/Resolved]
  - Rhinorrhoea [Recovered/Resolved]
  - Tachycardia [Recovered/Resolved]
